FAERS Safety Report 8528757-9 (Version None)
Quarter: 2012Q3

REPORT INFORMATION
  Report Type: 
  Country: None (occurrence: None)
  Receive Date: 20120723
  Receipt Date: 20120716
  Transmission Date: 20120928
  Serious: Yes (Hospitalization, Other)
  Sender: FDA-Public Use
  Company Number: GB-009507513-1207GBR006839

PATIENT

DRUGS (5)
  1. INDAPAMIDE [Concomitant]
     Indication: HYPERTENSION
     Dosage: 1.5 MG, UNK
     Route: 048
  2. ZOCOR [Suspect]
     Dosage: 10 MG, UNK
     Route: 048
     Dates: start: 20071201
  3. ZOCOR [Suspect]
     Indication: BLOOD CHOLESTEROL INCREASED
     Dosage: 80 MG, UNK
     Route: 048
     Dates: start: 20120201, end: 20120611
  4. ZOCOR [Suspect]
     Dosage: 40 MG, UNK
     Route: 048
     Dates: start: 20110701
  5. CANDESARTAN [Concomitant]
     Indication: HYPERTENSION
     Dosage: 8 MG, UNK
     Route: 048

REACTIONS (3)
  - DRUG-INDUCED LIVER INJURY [None]
  - RHABDOMYOLYSIS [None]
  - BLOOD CREATINE PHOSPHOKINASE INCREASED [None]
